FAERS Safety Report 4923499-0 (Version None)
Quarter: 2006Q1

REPORT INFORMATION
  Report Type: 
  Country: None (occurrence: None)
  Receive Date: 20060227
  Receipt Date: 20050901
  Transmission Date: 20060701
  Serious: Yes (Death, Other)
  Sender: FDA-Public Use
  Company Number: PHEH2005US09841

PATIENT
  Age: 68 Year
  Sex: Female
  Weight: 46.712 kg

DRUGS (3)
  1. TAXOTERE [Concomitant]
     Dosage: WEEKLY
  2. ZOMETA [Suspect]
     Indication: METASTASES TO BONE
     Dosage: 4 MG Q4WK
     Dates: start: 20030902, end: 20050401
  3. FASLODEX [Concomitant]

REACTIONS (7)
  - BONE DISORDER [None]
  - MALIGNANT NEOPLASM PROGRESSION [None]
  - OSTEONECROSIS [None]
  - TOOTH DISORDER [None]
  - TOOTH EXTRACTION [None]
  - TOOTH INFECTION [None]
  - TOOTHACHE [None]
